FAERS Safety Report 6934767-5 (Version None)
Quarter: 2010Q3

REPORT INFORMATION
  Report Type: 
  Country: None (occurrence: None)
  Receive Date: 20100820
  Receipt Date: 20100804
  Transmission Date: 20110219
  Serious: Yes (Hospitalization, Other)
  Sender: FDA-Public Use
  Company Number: PHHY2010BR51339

PATIENT
  Sex: Female

DRUGS (1)
  1. DIOVAN HCT [Suspect]

REACTIONS (2)
  - HAEMATOCHEZIA [None]
  - PYREXIA [None]
